FAERS Safety Report 18335124 (Version 1)
Quarter: 2020Q4

REPORT INFORMATION
  Report Type: Spontaneous
  Country: US (occurrence: US)
  Receive Date: 20201001
  Receipt Date: 20201001
  Transmission Date: 20210113
  Serious: No
  Sender: FDA-Public Use
  Company Number: None

PATIENT
  Sex: Female
  Weight: 72 kg

DRUGS (6)
  1. VITAMIN D3 [Concomitant]
     Active Substance: CHOLECALCIFEROL
  2. TRIMETHOPRIM / SULFAMETHOXAZOLE [Suspect]
     Active Substance: SULFAMETHOXAZOLE\TRIMETHOPRIM
     Dosage: ?          QUANTITY:1 TABLET(S);?
  3. FERGON [Concomitant]
     Active Substance: FERROUS GLUCONATE
  4. RESTORIL [Concomitant]
     Active Substance: TEMAZEPAM
  5. FIORICET [Concomitant]
     Active Substance: ACETAMINOPHEN\BUTALBITAL\CAFFEINE
  6. CENTRUM SILVER FOR WOMEN OVER 50 [Concomitant]

REACTIONS (4)
  - Hair texture abnormal [None]
  - Skin hypertrophy [None]
  - Nail disorder [None]
  - Alopecia [None]
